FAERS Safety Report 4971169-5 (Version None)
Quarter: 2006Q1

REPORT INFORMATION
  Report Type: 
  Country: None (occurrence: None)
  Receive Date: 20060222
  Receipt Date: 20050504
  Transmission Date: 20060701
  Serious: Yes (Hospitalization)
  Sender: FDA-Public Use
  Company Number: HQWYE581606MAY05

PATIENT
  Age: 72 Year
  Sex: Female
  Weight: 47.22 kg

DRUGS (1)
  1. PROTONIX [Suspect]
     Indication: FREQUENT BOWEL MOVEMENTS
     Dosage: ORAL
     Route: 048
     Dates: start: 20050424, end: 20050428

REACTIONS (3)
  - PRURITUS GENERALISED [None]
  - RASH MACULAR [None]
  - RASH PAPULAR [None]
